FAERS Safety Report 4507759-3 (Version None)
Quarter: 2004Q4

REPORT INFORMATION
  Report Type: 
  Country: None (occurrence: None)
  Receive Date: 20041123
  Receipt Date: 20041104
  Transmission Date: 20050328
  Serious: Yes (Death, Life-Threatening, Hospitalization, Disabling, Other)
  Sender: FDA-Public Use
  Company Number: 200421062GDDC

PATIENT
  Age: 42 Year
  Sex: Male

DRUGS (11)
  1. RIFAMPICIN [Suspect]
     Indication: MENINGITIS TUBERCULOUS
     Route: 048
     Dates: start: 20040301, end: 20040308
  2. RIFAMPICIN [Suspect]
     Indication: PULMONARY TUBERCULOSIS
     Route: 048
     Dates: start: 20040301, end: 20040308
  3. ISONIAZID [Suspect]
     Indication: MENINGITIS TUBERCULOUS
     Route: 048
     Dates: start: 20040301, end: 20040316
  4. ISONIAZID [Suspect]
     Indication: PULMONARY TUBERCULOSIS
     Route: 048
     Dates: start: 20040301, end: 20040316
  5. PYRAZINAMIDE [Suspect]
     Indication: MENINGITIS TUBERCULOUS
     Route: 048
     Dates: start: 20040301, end: 20040316
  6. PYRAZINAMIDE [Suspect]
     Indication: PULMONARY TUBERCULOSIS
     Route: 048
     Dates: start: 20040301, end: 20040316
  7. PYRIDOXINE [Concomitant]
     Dates: start: 20040301, end: 20040316
  8. THIAMINE [Concomitant]
     Dates: start: 20040310, end: 20040315
  9. DEXAMETHASONE [Concomitant]
     Dates: start: 20040310, end: 20040312
  10. OMEPRAZOLE [Concomitant]
     Dates: start: 20040310, end: 20040312
  11. ERYTHROMYCIN [Concomitant]
     Dates: start: 20040310, end: 20040312

REACTIONS (10)
  - ADVERSE DRUG REACTION [None]
  - CHOLESTASIS [None]
  - DISSEMINATED INTRAVASCULAR COAGULATION [None]
  - HEPATIC ATROPHY [None]
  - HEPATIC FAILURE [None]
  - HEPATITIS GRANULOMATOUS [None]
  - HEPATOCELLULAR DAMAGE [None]
  - RENAL IMPAIRMENT [None]
  - RESPIRATORY FAILURE [None]
  - TUBERCULOSIS LIVER [None]
